FAERS Safety Report 9958938 (Version 2)
Quarter: 2014Q1

REPORT INFORMATION
  Report Type: Report from Study
  Country: US (occurrence: US)
  Receive Date: 20140305
  Receipt Date: 20140305
  Transmission Date: 20141002
  Serious: Yes (Hospitalization)
  Sender: FDA-Public Use
  Company Number: US-ABBVIE-13P-163-1084277-00

PATIENT
  Age: 26 Year
  Sex: Female
  Weight: 95.34 kg

DRUGS (9)
  1. HUMIRA [Suspect]
     Indication: CROHN^S DISEASE
  2. HUMIRA [Suspect]
  3. HUMIRA [Suspect]
     Dosage: LOADING DOSE
     Route: 058
     Dates: start: 20130423, end: 20130423
  4. HUMIRA [Suspect]
     Route: 058
     Dates: end: 20130603
  5. HUMIRA [Suspect]
     Route: 058
  6. ZOLOFT [Concomitant]
     Indication: DEPRESSION
     Dosage: 50 MG DAILY
  7. OMEPRAZOLE [Concomitant]
     Indication: DYSPEPSIA
     Dosage: DAILY
  8. XANAX [Concomitant]
     Indication: ANXIETY
     Dosage: 1 MG DAILY
  9. OXYCODONE [Concomitant]
     Indication: PAIN

REACTIONS (2)
  - Crohn^s disease [Not Recovered/Not Resolved]
  - Drug ineffective [Not Recovered/Not Resolved]
